FAERS Safety Report 21368597 (Version 1)
Quarter: 2022Q3

REPORT INFORMATION
  Report Type: Spontaneous
  Country: US (occurrence: US)
  Receive Date: 20220923
  Receipt Date: 20220923
  Transmission Date: 20221026
  Serious: No
  Sender: FDA-Public Use
  Company Number: US-ELI_LILLY_AND_COMPANY-US202209008024

PATIENT
  Sex: Female

DRUGS (2)
  1. TALTZ [Suspect]
     Active Substance: IXEKIZUMAB
     Indication: Rheumatoid arthritis
     Dosage: UNK UNK, UNKNOWN
     Route: 065
     Dates: start: 202112
  2. TALTZ [Suspect]
     Active Substance: IXEKIZUMAB
     Indication: Rheumatoid arthritis
     Dosage: UNK UNK, UNKNOWN
     Route: 065
     Dates: start: 202112

REACTIONS (2)
  - Rheumatoid arthritis [Unknown]
  - Injection site pain [Unknown]
